FAERS Safety Report 9107723 (Version 3)
Quarter: 2013Q3

REPORT INFORMATION
  Report Type: Spontaneous
  Country: US (occurrence: US)
  Receive Date: 20130221
  Receipt Date: 20130806
  Transmission Date: 20140515
  Serious: No
  Sender: FDA-Public Use
  Company Number: US-PFIZER INC-2013063611

PATIENT
  Age: 57 Year
  Sex: Male

DRUGS (2)
  1. INLYTA [Suspect]
     Indication: RENAL CANCER
     Dosage: 5 MG, 2X/DAY
     Dates: start: 20120511
  2. INLYTA [Suspect]
     Dosage: 5 MG, 2X/DAY

REACTIONS (3)
  - Pain in extremity [Unknown]
  - Hyperkeratosis [Unknown]
  - Paraesthesia [Unknown]
